FAERS Safety Report 9971578 (Version 1)
Quarter: 2014Q1

REPORT INFORMATION
  Report Type: Report from Study
  Country: US (occurrence: US)
  Receive Date: 20140306
  Receipt Date: 20140306
  Transmission Date: 20141002
  Serious: No
  Sender: FDA-Public Use
  Company Number: US-ABBVIE-13P-163-1148106-00

PATIENT
  Age: 30 Year
  Sex: Female

DRUGS (5)
  1. HUMIRA [Suspect]
     Indication: PSORIATIC ARTHROPATHY
     Dates: start: 201303, end: 201308
  2. HUMIRA [Suspect]
     Dates: start: 201308
  3. DEPAKOTE [Suspect]
     Indication: BIPOLAR DISORDER
     Dates: start: 201306, end: 201308
  4. DEPAKOTE [Suspect]
     Dates: start: 201308
  5. ALCOHOL [Suspect]
     Indication: PRODUCT USED FOR UNKNOWN INDICATION

REACTIONS (9)
  - Nausea [Not Recovered/Not Resolved]
  - Injection site pain [Not Recovered/Not Resolved]
  - Injection site pain [Not Recovered/Not Resolved]
  - Drug ineffective [Not Recovered/Not Resolved]
  - Restless legs syndrome [Not Recovered/Not Resolved]
  - Drug ineffective [Not Recovered/Not Resolved]
  - Drug ineffective [Not Recovered/Not Resolved]
  - Dysuria [Recovered/Resolved]
  - Diarrhoea [Not Recovered/Not Resolved]
